FAERS Safety Report 24911285 (Version 1)
Quarter: 2025Q1

REPORT INFORMATION
  Report Type: Spontaneous
  Country: US (occurrence: None)
  Receive Date: 20250131
  Receipt Date: 20250131
  Transmission Date: 20250409
  Serious: Yes (unspecified)
  Sender: FDA-CTU
  Company Number: None

PATIENT
  Age: 43 Year
  Sex: Male
  Weight: 86.18 kg

DRUGS (1)
  1. AMBRISENTAN [Suspect]
     Active Substance: AMBRISENTAN
     Indication: Pulmonary arterial hypertension
     Dates: start: 20240626, end: 20250130

REACTIONS (6)
  - Pruritus [None]
  - Scratch [None]
  - Haemorrhage [None]
  - Urticaria [None]
  - Medical procedure [None]
  - Procedural complication [None]

NARRATIVE: CASE EVENT DATE: 20250129
